FAERS Safety Report 20871966 (Version 1)
Quarter: 2022Q2

REPORT INFORMATION
  Report Type: Spontaneous
  Country: US (occurrence: US)
  Receive Date: 20220525
  Receipt Date: 20220525
  Transmission Date: 20220721
  Serious: Yes (Life-Threatening, Hospitalization, Other)
  Sender: FDA-Public Use
  Company Number: US-PFIZER INC-202200721581

PATIENT
  Age: 36 Year
  Sex: Female

DRUGS (17)
  1. DIPHENHYDRAMINE HYDROCHLORIDE [Interacting]
     Active Substance: DIPHENHYDRAMINE HYDROCHLORIDE
     Indication: Nausea
     Dosage: UNK
  2. DIPHENHYDRAMINE HYDROCHLORIDE [Interacting]
     Active Substance: DIPHENHYDRAMINE HYDROCHLORIDE
     Indication: Vomiting
  3. MAGNESIUM SULFATE [Interacting]
     Active Substance: MAGNESIUM SULFATE
     Indication: Pre-eclampsia
     Dosage: 2 G
  4. METOCLOPRAMIDE HYDROCHLORIDE [Interacting]
     Active Substance: METOCLOPRAMIDE HYDROCHLORIDE
     Indication: Nausea
     Dosage: UNK
  5. METOCLOPRAMIDE HYDROCHLORIDE [Interacting]
     Active Substance: METOCLOPRAMIDE HYDROCHLORIDE
     Indication: Vomiting
  6. ONDANSETRON [Interacting]
     Active Substance: ONDANSETRON
     Indication: Nausea
     Dosage: UNK
  7. ONDANSETRON [Interacting]
     Active Substance: ONDANSETRON
     Indication: Vomiting
  8. PANTOPRAZOLE [Interacting]
     Active Substance: PANTOPRAZOLE
     Dosage: UNK
  9. POTASSIUM CHLORIDE [Interacting]
     Active Substance: POTASSIUM CHLORIDE
     Dosage: 10 MEQ
  10. SERTRALINE HYDROCHLORIDE [Interacting]
     Active Substance: SERTRALINE HYDROCHLORIDE
     Indication: Feeling of despair
     Dosage: 50 MG, DAILY
  11. CLONAZEPAM [Interacting]
     Active Substance: CLONAZEPAM
     Indication: Mental disorder
     Dosage: 4 MG, DAILY
  12. CLONAZEPAM [Interacting]
     Active Substance: CLONAZEPAM
     Indication: Mania
  13. BUSPIRONE [Interacting]
     Active Substance: BUSPIRONE HYDROCHLORIDE
     Indication: Mental disorder
     Dosage: 30 MG, TWICE DAILY
  14. LURASIDONE [Interacting]
     Active Substance: LURASIDONE
     Indication: Mental disorder
     Dosage: 80 MG, DAILY
  15. LURASIDONE [Interacting]
     Active Substance: LURASIDONE
     Dosage: 120 MG, DAILY
  16. PROCHLORPERAZINE [Interacting]
     Active Substance: PROCHLORPERAZINE
     Indication: Nausea
     Dosage: UNK
  17. PROCHLORPERAZINE [Interacting]
     Active Substance: PROCHLORPERAZINE
     Indication: Vomiting

REACTIONS (3)
  - Drug interaction [Recovered/Resolved]
  - Serotonin syndrome [Recovered/Resolved]
  - Maternal exposure during pregnancy [Unknown]
